FAERS Safety Report 16477530 (Version 1)
Quarter: 2019Q2

REPORT INFORMATION
  Report Type: Spontaneous
  Country: US (occurrence: US)
  Receive Date: 20190626
  Receipt Date: 20190626
  Transmission Date: 20190711
  Serious: Yes (Other)
  Sender: FDA-Public Use
  Company Number: PHEH2019US025639

PATIENT
  Sex: Female
  Weight: 35 kg

DRUGS (1)
  1. BUDESONIDE. [Suspect]
     Active Substance: BUDESONIDE
     Indication: PRODUCT USED FOR UNKNOWN INDICATION
     Route: 065

REACTIONS (11)
  - Oedema [Unknown]
  - Rash pruritic [Unknown]
  - Joint swelling [Unknown]
  - Abdominal distension [Unknown]
  - Hypersensitivity [Unknown]
  - Blood immunoglobulin E increased [Unknown]
  - Swelling face [Unknown]
  - Abdominal pain [Unknown]
  - Ear swelling [Unknown]
  - Rash [Unknown]
  - Petechiae [Unknown]
